FAERS Safety Report 11145066 (Version 1)
Quarter: 2015Q2

REPORT INFORMATION
  Report Type: Spontaneous
  Country: US (occurrence: None)
  Receive Date: 20150526
  Receipt Date: 20150526
  Transmission Date: 20150821
  Serious: Yes (Life-Threatening, Hospitalization, Other)
  Sender: FDA-Public Use
  Company Number: ADR-2015-01014

PATIENT
  Age: 61 Year
  Sex: Male

DRUGS (1)
  1. BACLOFEN INTRATHECAL 2000MCG/ML [Suspect]
     Active Substance: BACLOFEN
     Indication: MUSCLE SPASTICITY
     Dosage: 294.7MCG/DAY

REACTIONS (2)
  - Overdose [None]
  - Encephalopathy [None]
